FAERS Safety Report 5299042-6 (Version None)
Quarter: 2007Q2

REPORT INFORMATION
  Report Type: 
  Country: None (occurrence: None)
  Receive Date: 20070417
  Receipt Date: 20070402
  Transmission Date: 20071010
  Serious: Yes (Hospitalization)
  Sender: FDA-Public Use
  Company Number: US-AMGEN-STX217992

PATIENT
  Sex: Female

DRUGS (3)
  1. ENBREL [Suspect]
     Indication: RHEUMATOID ARTHRITIS
     Route: 058
     Dates: start: 20061130, end: 20070226
  2. ENBREL [Suspect]
     Indication: PSORIASIS
  3. METHOTREXATE [Concomitant]
     Route: 065
     Dates: start: 20030101

REACTIONS (7)
  - ALOPECIA [None]
  - COLONOSCOPY [None]
  - DRUG INEFFECTIVE [None]
  - GOUT [None]
  - INFLUENZA [None]
  - PAIN IN EXTREMITY [None]
  - WEIGHT INCREASED [None]
